FAERS Safety Report 25968723 (Version 4)
Quarter: 2025Q4

REPORT INFORMATION
  Report Type: Report from Study
  Country: CA (occurrence: CA)
  Receive Date: 20251028
  Receipt Date: 20251230
  Transmission Date: 20260118
  Serious: Yes (Other)
  Sender: PFIZER
  Company Number: CA-PFIZER INC-202500212390

PATIENT
  Age: 76 Year
  Sex: Male
  Weight: 70 kg

DRUGS (5)
  1. IXIFI [Suspect]
     Active Substance: INFLIXIMAB-QBTX
     Indication: Crohn^s disease
     Dosage: 700 MG, EVERY 6 WEEKS
     Route: 042
     Dates: start: 20250625
  2. IXIFI [Suspect]
     Active Substance: INFLIXIMAB-QBTX
     Dosage: 700 MG, EVERY 6 WEEKS
     Route: 042
     Dates: start: 20250916
  3. IXIFI [Suspect]
     Active Substance: INFLIXIMAB-QBTX
     Dosage: 700 MG, 7 WEEKS AND 2 DAYS(700 MG, EVERY 6 WEEKS)
     Route: 042
     Dates: start: 20251106
  4. IXIFI [Suspect]
     Active Substance: INFLIXIMAB-QBTX
     Dosage: 700MG, EVERY 6 WEEKS
     Route: 042
     Dates: start: 20251219
  5. METHOTREXATE [Concomitant]
     Active Substance: METHOTREXATE
     Dosage: 1 DF

REACTIONS (5)
  - Prostate cancer [Not Recovered/Not Resolved]
  - Lung neoplasm malignant [Not Recovered/Not Resolved]
  - Adrenal gland cancer [Not Recovered/Not Resolved]
  - Condition aggravated [Recovering/Resolving]
  - Arthralgia [Recovered/Resolved]

NARRATIVE: CASE EVENT DATE: 20250101
